FAERS Safety Report 6984150-1 (Version None)
Quarter: 2010Q3

REPORT INFORMATION
  Report Type: 
  Country: None (occurrence: None)
  Receive Date: 20100915
  Receipt Date: 20090730
  Transmission Date: 20110219
  Serious: No
  Sender: FDA-Public Use
  Company Number: US-WYE-H10415409

PATIENT
  Sex: Female
  Weight: 65.83 kg

DRUGS (4)
  1. PHOSPHOLINE IODIDE [Suspect]
     Indication: GLAUCOMA
     Dosage: .125% 1 DROP IN LEFT EYE BID
     Route: 001
     Dates: start: 20090716, end: 20090726
  2. ALPHAGAN [Concomitant]
  3. TRAVATAN [Concomitant]
  4. COSOPT [Concomitant]

REACTIONS (1)
  - DRUG INEFFECTIVE [None]
